FAERS Safety Report 10210992 (Version 2)
Quarter: 2014Q2

REPORT INFORMATION
  Report Type: Report from Study
  Country: NL (occurrence: NL)
  Receive Date: 20140602
  Receipt Date: 20140602
  Transmission Date: 20141212
  Serious: Yes (Hospitalization)
  Sender: FDA-Public Use
  Company Number: NL-GILEAD-2011-0046004

PATIENT
  Age: 57 Year
  Sex: Female
  Weight: 93 kg

DRUGS (8)
  1. AMBRISENTAN [Suspect]
     Indication: PULMONARY ARTERIAL HYPERTENSION
     Dosage: UNK UNK, QD
     Route: 048
     Dates: start: 20110929, end: 20111019
  2. TADALAFIL [Suspect]
     Indication: PULMONARY ARTERIAL HYPERTENSION
     Dosage: UNK, QD
     Route: 048
     Dates: start: 20110929, end: 20111019
  3. SIMVASTATINE [Concomitant]
     Dosage: 40MG PER DAY
     Route: 048
  4. INSULINE GLARGINE [Concomitant]
     Dosage: 12UNIT PER DAY
     Route: 058
  5. SALMETEROL [Concomitant]
     Route: 055
  6. DALTEPARIN                         /01708302/ [Concomitant]
     Dosage: 18UNIT PER DAY
     Route: 058
  7. SPIRIVA [Concomitant]
     Route: 055
  8. SERETIDE [Concomitant]
     Route: 055

REACTIONS (1)
  - Dyspnoea [Recovered/Resolved]
